FAERS Safety Report 6886962-1 (Version None)
Quarter: 2010Q3

REPORT INFORMATION
  Report Type: 
  Country: None (occurrence: None)
  Receive Date: 20100708
  Receipt Date: 20100518
  Transmission Date: 20110219
  Serious: Yes (Other)
  Sender: FDA-Public Use
  Company Number: 2010032865

PATIENT
  Age: 23 Year
  Sex: Female
  Weight: 65 kg

DRUGS (2)
  1. CHANTIX [Suspect]
     Indication: SMOKING CESSATION THERAPY
     Dosage: 0.5 MG, 1X/DAY, ORAL; 1 MG, 2X/DAY
     Dates: start: 20100228, end: 20100101
  2. CHANTIX [Suspect]
     Indication: SMOKING CESSATION THERAPY
     Dosage: 0.5 MG, 1X/DAY, ORAL; 1 MG, 2X/DAY
     Dates: start: 20100101

REACTIONS (6)
  - CONSTIPATION [None]
  - DEPRESSED MOOD [None]
  - FLATULENCE [None]
  - HEADACHE [None]
  - INSOMNIA [None]
  - NAUSEA [None]
